FAERS Safety Report 9374906 (Version 3)
Quarter: 2013Q3

REPORT INFORMATION
  Report Type: Spontaneous
  Country: US (occurrence: US)
  Receive Date: 20130628
  Receipt Date: 20130717
  Transmission Date: 20140515
  Serious: Yes (Other)
  Sender: FDA-Public Use
  Company Number: US-PFIZER INC-2013192175

PATIENT
  Age: 54 Year
  Sex: Female
  Weight: 54.42 kg

DRUGS (8)
  1. LYRICA [Suspect]
     Indication: FIBROMYALGIA
     Dosage: 25 MG, 3X/DAY
     Route: 048
     Dates: start: 20130417, end: 20130619
  2. LYRICA [Suspect]
     Indication: PAIN
     Dosage: 25 MG, 1X/DAY
     Route: 048
     Dates: start: 20130530, end: 20130531
  3. LAMICTAL [Concomitant]
     Dosage: UNK
  4. PROGESTERONE [Concomitant]
     Dosage: UNK
  5. ESTROGENS [Concomitant]
     Dosage: UNK
  6. NORTRIPTYLINE [Concomitant]
     Dosage: UNK
  7. ZANAFLEX [Concomitant]
     Indication: MUSCLE SPASMS
     Dosage: 2 MG, 3X/DAY
     Dates: start: 201304
  8. TRAMADOL [Concomitant]
     Indication: PAIN
     Dosage: 50 MG, 2X/DAY
     Dates: start: 201304

REACTIONS (18)
  - Loss of consciousness [Recovered/Resolved]
  - Tachyphrenia [Recovered/Resolved]
  - Visual impairment [Recovered/Resolved]
  - Fall [Recovered/Resolved]
  - Mania [Recovered/Resolved]
  - Formication [Recovered/Resolved]
  - Arthralgia [Recovered/Resolved]
  - Feeling abnormal [Recovered/Resolved]
  - Hallucination, visual [Recovered/Resolved]
  - Thinking abnormal [Recovered/Resolved]
  - Dizziness [Recovered/Resolved]
  - Pallor [Recovered/Resolved]
  - Psychomotor hyperactivity [Recovered/Resolved]
  - Decreased appetite [Recovered/Resolved]
  - Nausea [Recovered/Resolved]
  - Insomnia [Recovered/Resolved]
  - Hallucination [Recovered/Resolved]
  - Mood altered [Recovered/Resolved]
